FAERS Safety Report 7356379-4 (Version None)
Quarter: 2011Q1

REPORT INFORMATION
  Report Type: 
  Country: None (occurrence: None)
  Receive Date: 20110316
  Receipt Date: 20110309
  Transmission Date: 20110831
  Serious: Yes (Other)
  Sender: FDA-Public Use
  Company Number: US-ELI_LILLY_AND_COMPANY-US200809003264

PATIENT
  Sex: Male

DRUGS (11)
  1. HUMALOG [Suspect]
  2. ATENOLOL [Concomitant]
  3. LANTUS [Concomitant]
  4. HUMALOG [Suspect]
     Indication: DIABETES MELLITUS
     Dosage: UNK, UNK
     Dates: start: 20080722
  5. RENAGEL [Concomitant]
  6. TYLENOL /USA/ [Concomitant]
  7. METOCLOPRAMIDE HCL [Concomitant]
  8. PLAVIX [Concomitant]
  9. PRILOSEC [Concomitant]
  10. ASPIRIN [Concomitant]
  11. AMLODIPINE [Concomitant]

REACTIONS (7)
  - RENAL FAILURE [None]
  - BLOOD GLUCOSE INCREASED [None]
  - DRUG DOSE OMISSION [None]
  - CONFUSIONAL STATE [None]
  - BLOOD GLUCOSE FLUCTUATION [None]
  - DRUG INEFFECTIVE [None]
  - MOBILITY DECREASED [None]
